FAERS Safety Report 8299897-7 (Version None)
Quarter: 2012Q2

REPORT INFORMATION
  Report Type: 
  Country: None (occurrence: None)
  Receive Date: 20120419
  Receipt Date: 20120411
  Transmission Date: 20120825
  Serious: Yes (Other)
  Sender: FDA-Public Use
  Company Number: DE-BRISTOL-MYERS SQUIBB COMPANY-16516353

PATIENT
  Age: 67 Year
  Sex: Female

DRUGS (5)
  1. LISINOPRIL [Concomitant]
  2. TENORMIN [Concomitant]
  3. SPRYCEL [Suspect]
     Indication: LEUKAEMIA
     Dosage: 1DF=50MG AND 100 MG/DAY FOR 3-4YRS
  4. BLOOD PRESSURE MEDICATION [Concomitant]
  5. SPIRO COMP [Concomitant]

REACTIONS (1)
  - LARYNGOSPASM [None]
